FAERS Safety Report 13347472 (Version 5)
Quarter: 2020Q3

REPORT INFORMATION
  Report Type: Report from Study
  Country: GB (occurrence: GB)
  Receive Date: 20170317
  Receipt Date: 20170518
  Transmission Date: 20201105
  Serious: Yes (Death, Hospitalization)
  Sender: FDA-Public Use
  Company Number: GB-JNJFOC-20170317444

PATIENT
  Age: 56 Year
  Sex: Male

DRUGS (8)
  1. IBRUTINIB [Suspect]
     Active Substance: IBRUTINIB
     Indication: PANCREATIC CARCINOMA METASTATIC
     Dates: start: 20170118, end: 20170303
  2. LANSOPRAZOLE. [Concomitant]
     Active Substance: LANSOPRAZOLE
     Indication: GASTROOESOPHAGEAL REFLUX DISEASE
     Dates: start: 201611
  3. IBRUTINIB [Suspect]
     Active Substance: IBRUTINIB
  4. CREON [Concomitant]
     Active Substance: PANCRELIPASE AMYLASE\PANCRELIPASE LIPASE\PANCRELIPASE PROTEASE
     Indication: ENZYME SUPPLEMENTATION
     Dates: start: 201610
  5. GEMCITABINE. [Suspect]
     Active Substance: GEMCITABINE
     Indication: PANCREATIC CARCINOMA METASTATIC
     Dosage: 1000 MG, D1, 8, 15
     Route: 042
     Dates: start: 20170118, end: 20170301
  6. NAB?PACLITAXEL [Suspect]
     Active Substance: PACLITAXEL
     Indication: PANCREATIC CARCINOMA METASTATIC
     Dosage: 825 MG/M2, D1, 8, 15
     Route: 042
     Dates: start: 20170118, end: 20170301
  7. NASEPTIN [Concomitant]
     Active Substance: CHLORHEXIDINE HYDROCHLORIDE\NEOMYCIN SULFATE
     Indication: EPISTAXIS
     Dates: start: 20170210, end: 20170217
  8. COCODAMOL [Concomitant]
     Active Substance: ACETAMINOPHEN\CODEINE PHOSPHATE
     Indication: PAIN
     Dates: start: 201610

REACTIONS (2)
  - Pancreatic carcinoma metastatic [Fatal]
  - Rectal haemorrhage [Recovered/Resolved]

NARRATIVE: CASE EVENT DATE: 20170304
